FAERS Safety Report 18014365 (Version 1)
Quarter: 2020Q3

REPORT INFORMATION
  Report Type: Spontaneous
  Country: IT (occurrence: IT)
  Receive Date: 20200713
  Receipt Date: 20200713
  Transmission Date: 20201103
  Serious: Yes (Hospitalization)
  Sender: FDA-Public Use
  Company Number: IT-PFIZER INC-2020265605

PATIENT
  Age: 86 Year
  Sex: Female

DRUGS (5)
  1. YASNAL [Concomitant]
     Indication: DEMENTIA ALZHEIMER^S TYPE
     Dosage: 10 MG
     Route: 048
  2. SERTRALINE [Concomitant]
     Active Substance: SERTRALINE HYDROCHLORIDE
     Indication: DEMENTIA ALZHEIMER^S TYPE
     Dosage: 100 MG
     Route: 048
  3. TRITTICO [Concomitant]
     Active Substance: TRAZODONE HYDROCHLORIDE
     Indication: DEMENTIA ALZHEIMER^S TYPE
     Dosage: 15 DROP
     Route: 048
  4. RISPERIDONE. [Concomitant]
     Active Substance: RISPERIDONE
     Indication: DEMENTIA ALZHEIMER^S TYPE
     Dosage: 1 MG
     Route: 048
  5. ALPRAZOLAM. [Suspect]
     Active Substance: ALPRAZOLAM
     Indication: DEMENTIA ALZHEIMER^S TYPE
     Dosage: 0.25 MG, ONCE A DAY
     Route: 048

REACTIONS (5)
  - Heart rate irregular [Recovering/Resolving]
  - Overdose [Recovering/Resolving]
  - Off label use [Unknown]
  - Product use in unapproved indication [Unknown]
  - Cognitive disorder [Recovering/Resolving]

NARRATIVE: CASE EVENT DATE: 20200613
